FAERS Safety Report 5739919-8 (Version None)
Quarter: 2008Q2

REPORT INFORMATION
  Report Type: 
  Country: None (occurrence: None)
  Receive Date: 20080516
  Receipt Date: 20080507
  Transmission Date: 20081010
  Serious: No
  Sender: FDA-Public Use
  Company Number: US-JNJFOC-20080501885

PATIENT
  Sex: Female

DRUGS (5)
  1. INVEGA [Suspect]
     Indication: SCHIZOPHRENIA
     Route: 048
  2. DURAGESIC-100 [Suspect]
     Indication: PAIN
     Route: 062
  3. TRILEPTAL [Concomitant]
  4. WELLBUTRIN [Concomitant]
  5. XANAX [Concomitant]

REACTIONS (3)
  - AMENORRHOEA [None]
  - BLOOD PROLACTIN INCREASED [None]
  - LIVER FUNCTION TEST ABNORMAL [None]
